FAERS Safety Report 24603256 (Version 3)
Quarter: 2025Q1

REPORT INFORMATION
  Report Type: Spontaneous
  Country: US (occurrence: US)
  Receive Date: 20241111
  Receipt Date: 20250108
  Transmission Date: 20250408
  Serious: No
  Sender: BLUEPRINT MEDICINES
  Company Number: US-Blueprint Medicines Corporation-5276

PATIENT
  Age: 40 Year
  Sex: Female

DRUGS (4)
  1. AYVAKIT [Suspect]
     Active Substance: AVAPRITINIB
     Indication: Systemic mastocytosis
     Route: 048
     Dates: start: 202410
  2. CROMOLYN [Concomitant]
     Active Substance: CROMOLYN
     Indication: Mast cell activation syndrome
     Route: 065
  3. XOLAIR [Concomitant]
     Active Substance: OMALIZUMAB
     Indication: Urticaria
     Route: 065
  4. ANTIHISTAMINES NOS [Concomitant]
     Active Substance: ANTIHISTAMINES NOS
     Indication: Urticaria
     Route: 065

REACTIONS (6)
  - Dehydration [Unknown]
  - Skin fissures [Recovered/Resolved]
  - Thirst [Recovered/Resolved]
  - Flushing [Recovered/Resolved]
  - Dry skin [Recovered/Resolved]
  - Dry mouth [Recovered/Resolved]

NARRATIVE: CASE EVENT DATE: 20241015
